FAERS Safety Report 13227059 (Version 1)
Quarter: 2017Q1

REPORT INFORMATION
  Report Type: Spontaneous
  Country: US (occurrence: US)
  Receive Date: 20170213
  Receipt Date: 20170213
  Transmission Date: 20170428
  Serious: Yes (Hospitalization)
  Sender: FDA-Public Use
  Company Number: None

PATIENT
  Age: 64 Year
  Sex: Female
  Weight: 145.6 kg

DRUGS (1)
  1. PANTOPRAZOLE [Suspect]
     Active Substance: PANTOPRAZOLE SODIUM
     Indication: GASTROOESOPHAGEAL REFLUX DISEASE
     Dosage: 40 MG AM PO
     Route: 048
     Dates: start: 20161229, end: 20170128

REACTIONS (4)
  - Tubulointerstitial nephritis [None]
  - Acute on chronic liver failure [None]
  - Acute kidney injury [None]
  - Anaemia [None]

NARRATIVE: CASE EVENT DATE: 20170123
